FAERS Safety Report 16527595 (Version 1)
Quarter: 2019Q3

REPORT INFORMATION
  Report Type: Spontaneous
  Country: GB (occurrence: GB)
  Receive Date: 20190703
  Receipt Date: 20190703
  Transmission Date: 20191004
  Serious: Yes (Hospitalization)
  Sender: FDA-Public Use
  Company Number: GB-PURDUE-GBR-2019-0067655

PATIENT
  Sex: Female

DRUGS (1)
  1. THEOPHYLLINE [Suspect]
     Active Substance: THEOPHYLLINE ANHYDROUS
     Indication: PRODUCT USED FOR UNKNOWN INDICATION
     Dosage: 800 MG, DAILY
     Route: 048

REACTIONS (4)
  - Tobacco interaction [Unknown]
  - Vomiting [Not Recovered/Not Resolved]
  - Drug level increased [Not Recovered/Not Resolved]
  - Diarrhoea [Not Recovered/Not Resolved]
